FAERS Safety Report 12421418 (Version 1)
Quarter: 2016Q2

REPORT INFORMATION
  Report Type: Spontaneous
  Country: KR (occurrence: KR)
  Receive Date: 20160531
  Receipt Date: 20160531
  Transmission Date: 20160815
  Serious: Yes (Other)
  Sender: FDA-Public Use
  Company Number: KR-BAYER-2016-097815

PATIENT
  Sex: Female

DRUGS (1)
  1. NEXAVAR [Suspect]
     Active Substance: SORAFENIB
     Indication: THYROID CANCER
     Dosage: 400 MG, BID
     Route: 048

REACTIONS (5)
  - Haemoptysis [Unknown]
  - Metastases to bone [None]
  - Epistaxis [Unknown]
  - Thyroid cancer metastatic [None]
  - Metastases to lung [None]

NARRATIVE: CASE EVENT DATE: 20160519
